FAERS Safety Report 5820231-3 (Version None)
Quarter: 2008Q3

REPORT INFORMATION
  Report Type: 
  Country: None (occurrence: None)
  Receive Date: 20080724
  Receipt Date: 20080723
  Transmission Date: 20090109
  Serious: Yes (Other)
  Sender: FDA-Public Use
  Company Number: PHEH2000US02141

PATIENT
  Sex: Female
  Weight: 118 kg

DRUGS (3)
  1. RAD 666 RAD+ [Suspect]
     Dosage: 0.75 MG, BID
     Route: 048
     Dates: start: 19990611
  2. NEORAL [Suspect]
     Route: 048
     Dates: start: 19990601
  3. PREDNISONE TAB [Suspect]
     Route: 048
     Dates: start: 19990917

REACTIONS (1)
  - BASAL CELL CARCINOMA [None]
